FAERS Safety Report 7968777-6 (Version None)
Quarter: 2011Q4

REPORT INFORMATION
  Report Type: 
  Country: None (occurrence: None)
  Receive Date: 20111209
  Receipt Date: 20111201
  Transmission Date: 20120403
  Serious: Yes (Hospitalization, Other)
  Sender: FDA-Public Use
  Company Number: FR-VERTEX PHARMACEUTICALS INC.-AE-2011-000318

PATIENT
  Sex: Female
  Weight: 69 kg

DRUGS (8)
  1. MODURETIC 5-50 [Concomitant]
     Indication: HYPERTENSION
  2. PROGESTERONE [Concomitant]
     Indication: MENOPAUSE
  3. VX-950 [Suspect]
     Indication: HEPATITIS C
     Route: 048
     Dates: start: 20110314, end: 20110601
  4. PEGASYS [Concomitant]
     Indication: HEPATITIS C
     Route: 058
     Dates: start: 20110314
  5. COPEGUS [Concomitant]
     Indication: HEPATITIS C
     Route: 048
     Dates: start: 20110314
  6. COPEGUS [Concomitant]
     Route: 048
  7. COPEGUS [Concomitant]
     Route: 048
  8. VERAPAMIL [Concomitant]
     Indication: HYPERTENSION

REACTIONS (7)
  - HYPOKALAEMIA [None]
  - RENAL FAILURE ACUTE [None]
  - ANAEMIA [None]
  - THROMBOCYTOPENIA [None]
  - OEDEMA PERIPHERAL [None]
  - HYPEROSMOLAR STATE [None]
  - PRURITUS [None]
